FAERS Safety Report 19329877 (Version 1)
Quarter: 2021Q2

REPORT INFORMATION
  Report Type: Spontaneous
  Country: US (occurrence: US)
  Receive Date: 20210528
  Receipt Date: 20210528
  Transmission Date: 20210717
  Serious: No
  Sender: FDA-Public Use
  Company Number: US-BAYER-2021-147007

PATIENT
  Age: 85 Year
  Sex: Male

DRUGS (3)
  1. ASPIRIN (CARDIO) [Concomitant]
     Active Substance: ASPIRIN
  2. LEUPROLIDE [LEUPRORELIN] [Concomitant]
     Active Substance: LEUPROLIDE ACETATE
  3. NUBEQA [Suspect]
     Active Substance: DAROLUTAMIDE
     Indication: PROSTATE CANCER
     Dosage: 600 MG, QD
     Dates: start: 202105

REACTIONS (9)
  - Asthenia [Not Recovered/Not Resolved]
  - Hyperhidrosis [Not Recovered/Not Resolved]
  - Hepatic enzyme abnormal [Not Recovered/Not Resolved]
  - Viral infection [Not Recovered/Not Resolved]
  - Off label use [None]
  - Dysstasia [Not Recovered/Not Resolved]
  - Hepatomegaly [Not Recovered/Not Resolved]
  - Influenza like illness [Not Recovered/Not Resolved]
  - Pyrexia [Not Recovered/Not Resolved]

NARRATIVE: CASE EVENT DATE: 20210519
